FAERS Safety Report 5922354-7 (Version None)
Quarter: 2008Q4

REPORT INFORMATION
  Report Type: 
  Country: None (occurrence: None)
  Receive Date: 20081017
  Receipt Date: 20081016
  Transmission Date: 20090506
  Serious: Yes (Death, Hospitalization)
  Sender: FDA-Public Use
  Company Number: US-BRISTOL-MYERS SQUIBB COMPANY-14372809

PATIENT
  Age: 84 Year
  Sex: Female
  Weight: 68 kg

DRUGS (3)
  1. COUMADIN [Suspect]
  2. HEPARIN SODIUM [Suspect]
     Indication: CORONARY ARTERY BYPASS
     Dosage: 1SEP07-1SEP07 SEP07-21DEC07 1,000UNITS,5000U,30000IU.
     Dates: start: 20070901, end: 20071221
  3. HEPARIN SODIUM [Suspect]
     Indication: THROMBOSIS PROPHYLAXIS
     Dosage: 1SEP07-1SEP07 SEP07-21DEC07 1,000UNITS,5000U,30000IU.
     Dates: start: 20070901, end: 20071221

REACTIONS (6)
  - CONFUSIONAL STATE [None]
  - CORONARY ARTERY DISEASE [None]
  - DECUBITUS ULCER [None]
  - INFECTION [None]
  - PYREXIA [None]
  - RENAL FAILURE [None]
